FAERS Safety Report 18506676 (Version 1)
Quarter: 2020Q4

REPORT INFORMATION
  Report Type: Spontaneous
  Country: CA (occurrence: CA)
  Receive Date: 20201116
  Receipt Date: 20201116
  Transmission Date: 20210114
  Serious: Yes (Other)
  Sender: FDA-Public Use
  Company Number: NVSC2020CA304928

PATIENT
  Age: 68 Year
  Sex: Male

DRUGS (2)
  1. HEPARIN [Suspect]
     Active Substance: HEPARIN SODIUM
     Indication: AORTIC ANEURYSM
     Dosage: 5000 UNITS EVERY 8 H ON POSTOPERATIVE DAY (POD) 1
     Route: 058
  2. HEPARIN [Suspect]
     Active Substance: HEPARIN SODIUM
     Dosage: 5000 ADJUSTED TWICE DAILY ON POD 3
     Route: 058

REACTIONS (3)
  - Product use in unapproved indication [Unknown]
  - Ischaemic stroke [Unknown]
  - Heparin-induced thrombocytopenia [Unknown]
